FAERS Safety Report 5356132-7 (Version None)
Quarter: 2007Q2

REPORT INFORMATION
  Report Type: 
  Country: None (occurrence: None)
  Receive Date: 20070613
  Receipt Date: 20070611
  Transmission Date: 20071010
  Serious: Yes (Hospitalization)
  Sender: FDA-Public Use
  Company Number: JP-BOEHRINGER INGELHEIM PHARMACEUTICALS, INC.-2007-BP-01424NB

PATIENT
  Age: 36 Year
  Sex: Male

DRUGS (5)
  1. MICARDIS [Suspect]
     Indication: HYPERTENSION
     Route: 048
     Dates: start: 20060911
  2. ALDACTONE [Concomitant]
     Indication: HYPERTENSION
     Route: 048
     Dates: start: 20060911
  3. ADALAT [Concomitant]
     Indication: HYPERTENSION
     Route: 048
     Dates: start: 20060911
  4. TANATRIL [Concomitant]
     Indication: HYPERTENSION
     Route: 048
     Dates: start: 20061211
  5. CARDENALIN [Concomitant]
     Indication: HYPERTENSION
     Route: 048
     Dates: start: 20061211

REACTIONS (2)
  - BLOOD CREATININE INCREASED [None]
  - CHOLECYSTITIS [None]
